FAERS Safety Report 10248592 (Version 1)
Quarter: 2014Q2

REPORT INFORMATION
  Report Type: Spontaneous
  Country: US (occurrence: None)
  Receive Date: 20140617
  Receipt Date: 20140617
  Transmission Date: 20141212
  Serious: No
  Sender: FDA-Public Use
  Company Number: None

PATIENT
  Age: 50 Year
  Sex: Female

DRUGS (1)
  1. ESZOPICLONE [Suspect]
     Indication: INSOMNIA
     Dosage: 1/1 HS PO
     Route: 048
     Dates: start: 20140518, end: 20140522

REACTIONS (3)
  - Abnormal behaviour [None]
  - Abnormal sleep-related event [None]
  - Product substitution issue [None]
